FAERS Safety Report 21172724 (Version 2)
Quarter: 2022Q3

REPORT INFORMATION
  Report Type: Spontaneous
  Country: JP (occurrence: JP)
  Receive Date: 20220804
  Receipt Date: 20220816
  Transmission Date: 20221027
  Serious: Yes (Other)
  Sender: FDA-Public Use
  Company Number: JP-BAYER-2022A103763

PATIENT
  Age: 57 Year
  Sex: Male

DRUGS (7)
  1. IOPAMIRON [Suspect]
     Active Substance: IOPAMIDOL
     Indication: Computerised tomogram thorax
     Dosage: DOSE VOLUME 58 ML, ADMINISTRATION RATE 44 ML/SEC, ADMINISTRATION ROUTE RIGHT FOREARM, ADMINISTRATION
     Dates: start: 20220722, end: 20220722
  2. INDERAL [Suspect]
     Active Substance: PROPRANOLOL HYDROCHLORIDE
     Indication: Heart rate increased
     Dosage: 2A
     Route: 042
     Dates: start: 20220722, end: 20220722
  3. ISOSORBIDE DINITRATE [Suspect]
     Active Substance: ISOSORBIDE DINITRATE
     Dosage: 5 MG 1DF
     Route: 060
     Dates: start: 20220722
  4. BISOPROLOL FUMARATE [Concomitant]
     Active Substance: BISOPROLOL FUMARATE
     Dosage: DAILY DOSE 1 DF
     Route: 048
  5. OLMESARTAN MEDOXOMIL [Concomitant]
     Active Substance: OLMESARTAN MEDOXOMIL
     Dosage: DAILY DOSE 1 DF
     Route: 048
  6. JARDIANCE [Concomitant]
     Active Substance: EMPAGLIFLOZIN
     Dosage: DAILY DOSE 1 DF
     Route: 048
  7. PRASUGREL HYDROCHLORIDE [Concomitant]
     Active Substance: PRASUGREL HYDROCHLORIDE
     Dosage: DAILY DOSE 1 DF
     Route: 048

REACTIONS (4)
  - Shock [Recovered/Resolved]
  - Kounis syndrome [Recovered/Resolved]
  - Seizure [Recovered/Resolved]
  - Physical deconditioning [Recovered/Resolved]

NARRATIVE: CASE EVENT DATE: 20220722
